FAERS Safety Report 7834721 (Version 8)
Quarter: 2014Q2

REPORT INFORMATION
  Report Type: Report from Study
  Country: US (occurrence: US)
  Receive Date: 20110301
  Receipt Date: 20140604
  Transmission Date: 20141212
  Serious: Yes (Hospitalization, Other)
  Sender: FDA-Public Use
  Company Number: PHHY2011US14485

PATIENT
  Age: 45 Year
  Sex: Female
  Weight: 94.33 kg

DRUGS (11)
  1. GILENYA [Suspect]
     Indication: RELAPSING-REMITTING MULTIPLE SCLEROSIS
     Dosage: 0.5 MG, QD
     Route: 048
     Dates: start: 20110215, end: 201108
  2. CYMBALTA [Concomitant]
     Dosage: 60 MG, DAILY
     Route: 048
  3. NEXIUM [Concomitant]
     Indication: ABDOMINAL DISCOMFORT
     Dosage: 40 MG, BID
     Route: 048
  4. LISINOPRIL/HCTZ [Concomitant]
     Indication: HYPERTENSION
     Dosage: 20/12.5 MG DAILY
     Route: 048
  5. LIPITOR [Concomitant]
     Indication: HYPERLIPIDAEMIA
     Dosage: 80 MG, DAILY
  6. MULTIVITAMINS [Concomitant]
     Dosage: UNK UKN, UNK
  7. ASA [Concomitant]
     Dosage: 32 MG, DAILY
  8. ZETIA [Concomitant]
     Dosage: 10 MG, DAILY
     Route: 048
  9. SYNTHROID [Concomitant]
     Dosage: 150 MG, DAILY
     Route: 048
  10. INSULIN [Concomitant]
     Dosage: UNK UKN, UNK
  11. APIDRA [Concomitant]
     Dosage: UNK UKN, UNK
     Route: 048

REACTIONS (13)
  - Cardiomyopathy [Recovered/Resolved]
  - Chest discomfort [Recovered/Resolved]
  - Atrioventricular block first degree [Recovered/Resolved]
  - Electrocardiogram QT prolonged [Recovered/Resolved]
  - Angina pectoris [Recovered/Resolved]
  - QRS axis abnormal [Recovered/Resolved]
  - Sensory disturbance [Recovered/Resolved]
  - Feeling abnormal [Recovered/Resolved]
  - Pain in extremity [Recovered/Resolved]
  - Arthralgia [Recovered/Resolved]
  - Muscular weakness [Recovered/Resolved]
  - Headache [Recovered/Resolved]
  - Chest pain [Unknown]
